FAERS Safety Report 8552636-4 (Version None)
Quarter: 2012Q3

REPORT INFORMATION
  Report Type: 
  Country: None (occurrence: None)
  Receive Date: 20120731
  Receipt Date: 20120726
  Transmission Date: 20120928
  Serious: No
  Sender: FDA-Public Use
  Company Number: US-PFIZER INC-2012182031

PATIENT
  Sex: Female
  Weight: 74.8 kg

DRUGS (1)
  1. LYRICA [Suspect]
     Indication: POLYMYALGIA RHEUMATICA
     Dosage: 75 MG, DAILY
     Route: 048
     Dates: start: 20120709, end: 20120712

REACTIONS (6)
  - BALANCE DISORDER [None]
  - FEELING ABNORMAL [None]
  - SOMNOLENCE [None]
  - DIZZINESS [None]
  - ASTHENIA [None]
  - HEADACHE [None]
